FAERS Safety Report 23605976 (Version 2)
Quarter: 2024Q2

REPORT INFORMATION
  Report Type: Report from Study
  Country: ID (occurrence: None)
  Receive Date: 20240307
  Receipt Date: 20240402
  Transmission Date: 20240716
  Serious: Yes (Other)
  Sender: FDA-Public Use
  Company Number: 2024A052974

PATIENT
  Sex: Female

DRUGS (1)
  1. IMFINZI [Suspect]
     Active Substance: DURVALUMAB
     Dates: start: 20230713

REACTIONS (2)
  - Blood urea increased [Unknown]
  - Blood creatine increased [Unknown]
